FAERS Safety Report 12188771 (Version 1)
Quarter: 2016Q1

REPORT INFORMATION
  Report Type: Spontaneous
  Country: GB (occurrence: GB)
  Receive Date: 20160317
  Receipt Date: 20160317
  Transmission Date: 20160526
  Serious: Yes (Other)
  Sender: FDA-Public Use
  Company Number: GB-JNJFOC-20160315138

PATIENT
  Age: 76 Year
  Sex: Male

DRUGS (2)
  1. XARELTO [Suspect]
     Active Substance: RIVAROXABAN
     Indication: THROMBOSIS PROPHYLAXIS
     Route: 048
     Dates: start: 20160215, end: 20160218
  2. XARELTO [Suspect]
     Active Substance: RIVAROXABAN
     Indication: HIP ARTHROPLASTY
     Route: 048
     Dates: start: 20160215, end: 20160218

REACTIONS (6)
  - Dehydration [Unknown]
  - Gastrointestinal tract mucosal discolouration [Unknown]
  - Tongue discolouration [Unknown]
  - Oral mucosal discolouration [Unknown]
  - Chapped lips [Unknown]
  - Dry mouth [Unknown]
